FAERS Safety Report 15265582 (Version 1)
Quarter: 2018Q3

REPORT INFORMATION
  Report Type: Spontaneous
  Country: US (occurrence: US)
  Receive Date: 20180723
  Receipt Date: 20180723
  Transmission Date: 20181010
  Serious: No
  Sender: FDA-Public Use
  Company Number: None

PATIENT
  Age: 37 Year
  Sex: Female
  Weight: 84.2 kg

DRUGS (19)
  1. SEROQUEL [Suspect]
     Active Substance: QUETIAPINE FUMARATE
     Indication: ANXIETY
     Dosage: ?          QUANTITY:2 DF DOSAGE FORM;?
     Route: 048
     Dates: start: 20180529, end: 20180702
  2. SEROQUEL [Suspect]
     Active Substance: QUETIAPINE FUMARATE
     Indication: DEPRESSION
     Dosage: ?          QUANTITY:2 DF DOSAGE FORM;?
     Route: 048
     Dates: start: 20180529, end: 20180702
  3. SEROQUEL [Suspect]
     Active Substance: QUETIAPINE FUMARATE
     Indication: NIGHTMARE
     Dosage: ?          QUANTITY:2 DF DOSAGE FORM;?
     Route: 048
     Dates: start: 20180529, end: 20180702
  4. GABAPENTIN. [Concomitant]
     Active Substance: GABAPENTIN
  5. SINGULAIR [Concomitant]
     Active Substance: MONTELUKAST SODIUM
  6. TYLENOL [Concomitant]
     Active Substance: ACETAMINOPHEN
  7. MAGNESIUM [Concomitant]
     Active Substance: MAGNESIUM
  8. PROBIOTICS [Concomitant]
     Active Substance: PROBIOTICS NOS
  9. ROBAXIN [Concomitant]
     Active Substance: METHOCARBAMOL
  10. QVAR INHALER [Concomitant]
  11. PROTONIX [Concomitant]
     Active Substance: PANTOPRAZOLE SODIUM
  12. BACLOFEN. [Concomitant]
     Active Substance: BACLOFEN
  13. DILAUDID [Concomitant]
     Active Substance: HYDROMORPHONE HYDROCHLORIDE
  14. MS CONTIN [Concomitant]
     Active Substance: MORPHINE SULFATE
  15. COMPAZINE [Concomitant]
     Active Substance: PROCHLORPERAZINE MALEATE
  16. ONFI [Concomitant]
     Active Substance: CLOBAZAM
  17. CLARITIN [Concomitant]
     Active Substance: LORATADINE
  18. PRENATAL VITAMINS [Concomitant]
     Active Substance: VITAMINS
  19. VENTOLIN HFA [Concomitant]
     Active Substance: ALBUTEROL SULFATE

REACTIONS (6)
  - Influenza like illness [None]
  - Fatigue [None]
  - Therapy change [None]
  - Dehydration [None]
  - Therapy cessation [None]
  - Diarrhoea [None]

NARRATIVE: CASE EVENT DATE: 20180616
